FAERS Safety Report 11265501 (Version 1)
Quarter: 2015Q3

REPORT INFORMATION
  Report Type: Spontaneous
  Country: None (occurrence: None)
  Receive Date: 20150710
  Receipt Date: 20150710
  Transmission Date: 20151125
  Serious: Yes (Hospitalization)
  Sender: FDA-Public Use
  Company Number: None

PATIENT
  Age: 28 Year
  Sex: Male
  Weight: 95.4 kg

DRUGS (1)
  1. CANAGLIFLOZIN 100 MG JANSSEN [Suspect]
     Active Substance: CANAGLIFLOZIN
     Indication: DIABETES MELLITUS
     Dosage: 1 PILL
     Route: 048

REACTIONS (3)
  - Vomiting [None]
  - Diabetic ketoacidosis [None]
  - Nausea [None]

NARRATIVE: CASE EVENT DATE: 20150611
